FAERS Safety Report 7593383-5 (Version None)
Quarter: 2011Q3

REPORT INFORMATION
  Report Type: 
  Country: None (occurrence: None)
  Receive Date: 20110706
  Receipt Date: 20110701
  Transmission Date: 20111222
  Serious: Yes (Other)
  Sender: FDA-Public Use
  Company Number: CHPA2011CA08790

PATIENT
  Age: 47 Year
  Sex: Female

DRUGS (3)
  1. LESCOL [Concomitant]
     Indication: BLOOD CHOLESTEROL INCREASED
     Dosage: UNK, UNK
  2. HABITROL [Suspect]
     Indication: SMOKING CESSATION THERAPY
     Dosage: 21 MG, UNK
     Route: 062
     Dates: start: 20110401, end: 20110401
  3. EZETIMIBE [Concomitant]
     Indication: BLOOD CHOLESTEROL INCREASED
     Dosage: UNK, UNK

REACTIONS (5)
  - DIZZINESS [None]
  - CONFUSIONAL STATE [None]
  - MELAENA [None]
  - URINE ODOUR ABNORMAL [None]
  - FEELING ABNORMAL [None]
